FAERS Safety Report 9290950 (Version 1)
Quarter: 2013Q2

REPORT INFORMATION
  Report Type: Spontaneous
  Country: FR (occurrence: FR)
  Receive Date: 20130515
  Receipt Date: 20130515
  Transmission Date: 20140414
  Serious: Yes (Other)
  Sender: FDA-Public Use
  Company Number: FR-ASTRAZENECA-2013SE31813

PATIENT
  Age: 937 Month
  Sex: Female

DRUGS (14)
  1. CRESTOR [Suspect]
     Indication: DYSLIPIDAEMIA
     Route: 048
     Dates: start: 201104, end: 201105
  2. TAREG [Suspect]
     Indication: HYPERTENSION
     Route: 048
     Dates: start: 2008, end: 201110
  3. ELISOR [Suspect]
     Indication: DYSLIPIDAEMIA
     Route: 048
     Dates: start: 2000, end: 201104
  4. ELISOR [Suspect]
     Indication: DYSLIPIDAEMIA
     Route: 048
     Dates: end: 201302
  5. OLMETEC [Suspect]
     Indication: HYPERTENSION
     Route: 048
     Dates: start: 201110, end: 201112
  6. PRITOR [Suspect]
     Indication: HYPERTENSION
     Route: 048
     Dates: start: 201112, end: 20130113
  7. CORDARONE [Concomitant]
     Indication: ATRIAL FIBRILLATION
     Route: 048
     Dates: start: 2000, end: 2000
  8. VITAMINE B12 [Concomitant]
     Route: 030
     Dates: start: 1990
  9. SOTALEX [Concomitant]
     Route: 048
     Dates: start: 2000
  10. FLODIL SR [Concomitant]
     Route: 048
     Dates: start: 1996
  11. KARDEGIC [Concomitant]
     Route: 048
     Dates: start: 2000
  12. LEXOMIL [Concomitant]
     Indication: INSOMNIA
     Route: 048
     Dates: start: 2001
  13. LEVOTHYROX [Concomitant]
     Indication: THYROID DISORDER
     Route: 048
     Dates: start: 2000
  14. SMECTA [Concomitant]

REACTIONS (2)
  - Colitis microscopic [Recovering/Resolving]
  - Diarrhoea [Recovering/Resolving]
